FAERS Safety Report 23973369 (Version 1)
Quarter: 2024Q2

REPORT INFORMATION
  Report Type: Spontaneous
  Country: US (occurrence: None)
  Receive Date: 20240613
  Receipt Date: 20240613
  Transmission Date: 20240716
  Serious: No
  Sender: FDA-Public Use
  Company Number: US-MDD US Operations-MDD202309-003722

PATIENT
  Age: 72 Year
  Sex: Male
  Weight: 54.43 kg

DRUGS (9)
  1. APOKYN [Suspect]
     Active Substance: APOMORPHINE HYDROCHLORIDE
     Indication: Parkinson^s disease
     Route: 058
     Dates: start: 20230906
  2. RYTARY [Concomitant]
     Active Substance: CARBIDOPA\LEVODOPA
     Dosage: 23.75
  3. RYTARY [Concomitant]
     Active Substance: CARBIDOPA\LEVODOPA
     Dosage: 23.75/95
  4. MIDODRINE [Concomitant]
     Active Substance: MIDODRINE
     Dosage: 2.5 MG
  5. VENLAFAXINE [Concomitant]
     Active Substance: VENLAFAXINE HYDROCHLORIDE
     Dosage: 37.5
  6. ATORVASTATIN [Concomitant]
     Active Substance: ATORVASTATIN
  7. QUETIAPINE [Concomitant]
     Active Substance: QUETIAPINE
     Dosage: 25 MG
  8. MELATONIN [Concomitant]
     Active Substance: MELATONIN
     Dosage: NOT PROVIDED
  9. TYLENOL [Concomitant]
     Active Substance: ACETAMINOPHEN
     Dosage: NOT PROVIDED

REACTIONS (4)
  - Feeling abnormal [Recovered/Resolved]
  - Nausea [Recovered/Resolved]
  - Dyskinesia [Recovered/Resolved]
  - Diarrhoea [Recovered/Resolved]

NARRATIVE: CASE EVENT DATE: 20230916
